FAERS Safety Report 10757355 (Version 1)
Quarter: 2015Q1

REPORT INFORMATION
  Report Type: Spontaneous
  Country: IL (occurrence: None)
  Receive Date: 20150130
  Receipt Date: 20150130
  Transmission Date: 20150721
  Serious: Yes (Other)
  Sender: FDA-Public Use
  Company Number: UCM201501--000040

PATIENT
  Age: 54 Year
  Sex: Male

DRUGS (1)
  1. TOPIRAMATE (TOPIRAMATE) (TOPIRAMATE) [Suspect]
     Active Substance: TOPIRAMATE
     Indication: BINGE EATING

REACTIONS (2)
  - Angle closure glaucoma [None]
  - Uveitis [None]
